FAERS Safety Report 9633236 (Version 1)
Quarter: 2013Q4

REPORT INFORMATION
  Report Type: Spontaneous
  Country: CA (occurrence: None)
  Receive Date: 20131017
  Receipt Date: 20131017
  Transmission Date: 20140711
  Serious: Yes (Other)
  Sender: FDA-Public Use
  Company Number: AUR-APL-2013-08524

PATIENT
  Age: 30 Year
  Sex: Male

DRUGS (7)
  1. LEVETIRACETAM (LEVETIRACETAM) [Suspect]
     Indication: STATUS EPILEPTICUS
  2. TOPIRAMATE (TOPIRAMATE) [Suspect]
     Indication: STATUS EPILEPTICUS
  3. GABAPENTIN (GABAPENTIN) [Suspect]
     Indication: STATUS EPILEPTICUS
  4. PHENOBARBITAL (PHENOBARBITAL) [Suspect]
     Indication: STATUS EPILEPTICUS
  5. ACYCLOVIR (ACICLOVIR) (ACICLOVIR) [Suspect]
     Indication: PORPHYRIA ACUTE
  6. LACOSAMIDE (LACOSAMIDE) [Suspect]
     Indication: PORPHYRIA ACUTE
  7. VIGABATRIN (VIGABATRIN) [Suspect]
     Indication: PORPHYRIA ACUTE

REACTIONS (3)
  - Depressed level of consciousness [None]
  - Myoclonus [None]
  - Altered state of consciousness [None]
